FAERS Safety Report 5694224-3 (Version None)
Quarter: 2008Q2

REPORT INFORMATION
  Report Type: 
  Country: None (occurrence: None)
  Receive Date: 20080404
  Receipt Date: 20080401
  Transmission Date: 20081010
  Serious: Yes (Other)
  Sender: FDA-Public Use
  Company Number: US-RB-000643-08

PATIENT
  Sex: Male
  Weight: 56.25 kg

DRUGS (8)
  1. SUBOXONE [Suspect]
     Route: 060
     Dates: start: 20070708, end: 20070730
  2. SUBOXONE [Suspect]
     Indication: BACK PAIN
     Route: 060
     Dates: start: 20070708, end: 20070730
  3. ALBUTEROL [Concomitant]
     Indication: ASTHMA
     Dosage: 2 PUFFS EVERY 4-6 HOURS
     Route: 048
  4. PLENDIL [Concomitant]
     Indication: HYPERTENSION
     Route: 048
  5. KEPPRA [Concomitant]
     Route: 048
  6. CIPRO [Concomitant]
     Indication: SKIN INFECTION
     Dosage: STRENGTH UNKNOWN.  ONE TABLET TWICE DAILY
     Route: 048
  7. CELEBREX [Concomitant]
     Indication: BACK PAIN
     Route: 048
  8. AMBIEN CR [Concomitant]
     Indication: INSOMNIA
     Route: 048

REACTIONS (1)
  - CONVULSION [None]
